FAERS Safety Report 10183849 (Version 2)
Quarter: 2014Q2

REPORT INFORMATION
  Report Type: Spontaneous
  Country: US (occurrence: US)
  Receive Date: 20140520
  Receipt Date: 20140619
  Transmission Date: 20141212
  Serious: Yes (Hospitalization, Other)
  Sender: FDA-Public Use
  Company Number: US-BAYER-2014-074117

PATIENT
  Age: 28 Year
  Sex: Female
  Weight: 85.26 kg

DRUGS (7)
  1. MIRENA [Suspect]
     Indication: CONTRACEPTION
     Dosage: 20 MCG/24HR, CONT
     Route: 015
     Dates: start: 20060530, end: 20071009
  2. MIRENA [Suspect]
     Indication: CONTRACEPTION
     Dosage: 20 MCG/24HR, CONT
     Route: 015
     Dates: start: 20060530, end: 20071009
  3. MIRENA [Suspect]
     Indication: CONTRACEPTION
     Dosage: 20 MCG/24HR, CONT
     Route: 015
     Dates: start: 20060530, end: 20071009
  4. LISINOPRIL [Concomitant]
     Dosage: UNK
     Dates: start: 2012
  5. ZELNORM [Concomitant]
  6. ZEGERID [Concomitant]
  7. BENEFIBER [Concomitant]

REACTIONS (7)
  - Embedded device [None]
  - Device difficult to use [None]
  - Injury [None]
  - Emotional distress [None]
  - Abdominal pain [None]
  - Staphylococcal infection [None]
  - Device issue [None]
